FAERS Safety Report 9396295 (Version 1)
Quarter: 2013Q3

REPORT INFORMATION
  Report Type: Spontaneous
  Country: GB (occurrence: GB)
  Receive Date: 20130711
  Receipt Date: 20130711
  Transmission Date: 20140515
  Serious: Yes (Disabling, Other)
  Sender: FDA-Public Use
  Company Number: GB-WATSON-2013-05309

PATIENT
  Age: 36 Year
  Sex: Female

DRUGS (5)
  1. QUETIAPINE (UNKNOWN) [Suspect]
     Indication: BIPOLAR I DISORDER
     Dosage: 300 MG, UNK
     Route: 048
     Dates: start: 20061001
  2. ZOPICLONE [Concomitant]
     Indication: PRODUCT USED FOR UNKNOWN INDICATION
     Dosage: 7.5 MG, UNK
  3. COD LIVER OIL [Concomitant]
     Indication: PRODUCT USED FOR UNKNOWN INDICATION
     Dosage: UNK, UNKNOWN
     Route: 065
  4. CLINITAS HYDRATE [Concomitant]
     Indication: PRODUCT USED FOR UNKNOWN INDICATION
     Route: 065
  5. BECONASE AQ [Concomitant]
     Indication: PRODUCT USED FOR UNKNOWN INDICATION
     Route: 065

REACTIONS (2)
  - Weight increased [Unknown]
  - Agoraphobia [Unknown]
